FAERS Safety Report 24779229 (Version 2)
Quarter: 2024Q4

REPORT INFORMATION
  Report Type: Report from Study
  Country: FR (occurrence: FR)
  Receive Date: 20241226
  Receipt Date: 20241231
  Transmission Date: 20250114
  Serious: No
  Sender: ALNYLAM PHARMACEUTICALS
  Company Number: FR-ALNYLAM PHARMACEUTICALS, INC.-ALN-2024-007232

PATIENT

DRUGS (1)
  1. OXLUMO [Suspect]
     Active Substance: LUMASIRAN
     Indication: Product used for unknown indication
     Dosage: 189 MILLIGRAM (94.5 MILLIGRAM/0.5 MILLILITER)
     Route: 065

REACTIONS (9)
  - Multiple sclerosis [Unknown]
  - Back pain [Unknown]
  - Myalgia [Unknown]
  - Stress [Unknown]
  - Uterine mass [Unknown]
  - Dizziness [Unknown]
  - Lymphatic disorder [Unknown]
  - Tongue discolouration [Recovered/Resolved]
  - Mucosal disorder [Unknown]
